FAERS Safety Report 15804197 (Version 1)
Quarter: 2019Q1

REPORT INFORMATION
  Report Type: Spontaneous
  Country: JP (occurrence: JP)
  Receive Date: 20190109
  Receipt Date: 20190109
  Transmission Date: 20190417
  Serious: Yes (Other)
  Sender: FDA-Public Use
  Company Number: JP-BAYER-2019-006863

PATIENT
  Age: 8 Decade
  Sex: Male

DRUGS (1)
  1. STIVARGA [Suspect]
     Active Substance: REGORAFENIB
     Indication: HEPATOCELLULAR CARCINOMA
     Dosage: 160MG, 3 WEEKS ON AND 1 WEEK OFF
     Route: 048
     Dates: start: 20180928, end: 20181026

REACTIONS (1)
  - Hepatocellular carcinoma [Not Recovered/Not Resolved]

NARRATIVE: CASE EVENT DATE: 20181026
